FAERS Safety Report 11726745 (Version 10)
Quarter: 2017Q2

REPORT INFORMATION
  Report Type: Spontaneous
  Country: US (occurrence: US)
  Receive Date: 20151112
  Receipt Date: 20170621
  Transmission Date: 20170829
  Serious: Yes (Congenital Anomaly, Other)
  Sender: FDA-Public Use
  Company Number: PHEH2015US022836

PATIENT
  Sex: Female

DRUGS (4)
  1. ONDANSETRON [Suspect]
     Active Substance: ONDANSETRON
     Indication: FOETAL EXPOSURE DURING PREGNANCY
     Route: 064
  2. ZOFRAN [Suspect]
     Active Substance: ONDANSETRON HYDROCHLORIDE
     Indication: FOETAL EXPOSURE DURING PREGNANCY
     Dosage: MOTHER DOSE: 04 MG, Q6H
     Route: 064
  3. ZOFRAN [Suspect]
     Active Substance: ONDANSETRON HYDROCHLORIDE
     Indication: FOETAL EXPOSURE DURING PREGNANCY
     Route: 064
  4. ONDANSETRON [Suspect]
     Active Substance: ONDANSETRON
     Indication: FOETAL EXPOSURE DURING PREGNANCY
     Route: 064

REACTIONS (38)
  - Atrial septal defect [Unknown]
  - Rhinitis [Unknown]
  - Hypoplastic right heart syndrome [Unknown]
  - Cough [Unknown]
  - Vomiting [Unknown]
  - Candida infection [Unknown]
  - Decreased appetite [Unknown]
  - Nasal congestion [Unknown]
  - Fatigue [Unknown]
  - Congenital anomaly [Unknown]
  - Foetal exposure during pregnancy [Unknown]
  - Injury [Unknown]
  - Dysuria [Unknown]
  - Ear infection [Unknown]
  - Wheezing [Unknown]
  - Pain [Unknown]
  - Dermatitis diaper [Unknown]
  - Urinary tract infection [Unknown]
  - Upper respiratory tract infection [Unknown]
  - Anhedonia [Unknown]
  - Rhinorrhoea [Unknown]
  - Anxiety [Unknown]
  - Multiple congenital abnormalities [Unknown]
  - Hypoplastic left heart syndrome [Unknown]
  - Sneezing [Unknown]
  - Snoring [Unknown]
  - Cardiac murmur [Unknown]
  - Peripheral swelling [Unknown]
  - Dyspnoea [Unknown]
  - Emotional distress [Unknown]
  - Scar [Unknown]
  - Ear pain [Unknown]
  - Otitis media acute [Unknown]
  - Asthma [Unknown]
  - Pyrexia [Unknown]
  - Diarrhoea [Unknown]
  - Heart disease congenital [Unknown]
  - Transposition of the great vessels [Unknown]
